FAERS Safety Report 26180795 (Version 2)
Quarter: 2025Q4

REPORT INFORMATION
  Report Type: Spontaneous
  Country: JP (occurrence: None)
  Receive Date: 20251221
  Receipt Date: 20251230
  Transmission Date: 20260118
  Serious: No
  Sender: ORGANON
  Company Number: JP-JT-EVA202505071ORGANON

PATIENT

DRUGS (1)
  1. VTAMA [Suspect]
     Active Substance: TAPINAROF
     Indication: Psoriasis
     Dosage: UNK
     Route: 048

REACTIONS (1)
  - Application site erythema [Recovered/Resolved]
